FAERS Safety Report 4997123-5 (Version None)
Quarter: 2006Q2

REPORT INFORMATION
  Report Type: 
  Country: None (occurrence: None)
  Receive Date: 20060509
  Receipt Date: 20060427
  Transmission Date: 20061013
  Serious: Yes (Disabling)
  Sender: FDA-Public Use
  Company Number: 2006UW08585

PATIENT
  Sex: Male

DRUGS (3)
  1. ENTOCORT EC [Suspect]
     Indication: COLITIS ULCERATIVE
     Route: 048
     Dates: start: 20010104, end: 20020401
  2. VEXOL [Concomitant]
     Indication: DRY EYE
  3. VEXOL [Concomitant]
     Indication: UVEITIS

REACTIONS (4)
  - DRUG INEFFECTIVE [None]
  - GLAUCOMA [None]
  - VISUAL ACUITY REDUCED [None]
  - VISUAL FIELD DEFECT [None]
